FAERS Safety Report 11037391 (Version 1)
Quarter: 2015Q2

REPORT INFORMATION
  Report Type: Spontaneous
  Country: IT (occurrence: None)
  Receive Date: 20150414
  Receipt Date: 20150414
  Transmission Date: 20150821
  Serious: Yes (Life-Threatening)
  Sender: FDA-Public Use
  Company Number: FK201501685

PATIENT

DRUGS (2)
  1. LENALIDOMIDE [Suspect]
     Active Substance: LENALIDOMIDE
     Indication: PLASMA CELL MYELOMA
     Dosage: DAY 1-21 OF REPEATED 28-DAY CYCLE
     Route: 048
  2. DEXAMETHASONE INJECTION (MANUFACTURER UNKNOWN)  (DEXAMETHASONE SODIUM PHOSPHATE) (DEXAMETHASONE SODIUM PHOSPHATE) [Suspect]
     Active Substance: DEXAMETHASONE SODIUM PHOSPHATE
     Indication: PLASMA CELL MYELOMA
     Dosage: DAYS 1,8,15,22 OF EACH 28-DAY CYCLE

REACTIONS (2)
  - Gastric cancer [None]
  - Second primary malignancy [None]
